FAERS Safety Report 9539905 (Version 1)
Quarter: 2013Q2

REPORT INFORMATION
  Report Type: Spontaneous
  Country: US (occurrence: None)
  Receive Date: 20130521
  Receipt Date: 20130521
  Transmission Date: 20140414
  Serious: No
  Sender: FDA-Public Use
  Company Number: 1000042687

PATIENT
  Age: 47 Year
  Sex: Male

DRUGS (10)
  1. TUDORZA PRESSAIR (ACLIDINIUM BROMIDE) (400 MICROGRAM, POWDER) [Suspect]
     Indication: CHRONIC OBSTRUCTIVE PULMONARY DISEASE
     Dosage: 400 MCG, 2 IN 1 D RESPIRATORY
     Route: 055
     Dates: start: 20130127
  2. PRAVASTATIN [Concomitant]
  3. NITROSTAT [Concomitant]
  4. NEXIUM [Concomitant]
  5. ASPIRIN [Concomitant]
  6. ISOSORBIDE [Concomitant]
  7. METOPROLOL [Concomitant]
  8. COUMADIN [Concomitant]
  9. ADVAIR [Concomitant]
  10. NEURONTIN [Concomitant]

REACTIONS (3)
  - Oedema peripheral [None]
  - Pain in extremity [None]
  - Vomiting [None]
